FAERS Safety Report 5623689-8 (Version None)
Quarter: 2008Q1

REPORT INFORMATION
  Report Type: 
  Country: None (occurrence: None)
  Receive Date: 20080129
  Receipt Date: 20070615
  Transmission Date: 20080703
  Serious: Yes (Other)
  Sender: FDA-Public Use
  Company Number: WAES 0706USA02795

PATIENT
  Age: 52 Year
  Sex: Female

DRUGS (1)
  1. PRIMAXIN [Suspect]
     Indication: COLITIS
     Dosage: 500 MG/Q6H
     Dates: start: 20070609

REACTIONS (1)
  - GRAND MAL CONVULSION [None]
